FAERS Safety Report 6503732-4 (Version None)
Quarter: 2009Q4

REPORT INFORMATION
  Report Type: 
  Country: None (occurrence: None)
  Receive Date: 20091209
  Receipt Date: 20091209
  Transmission Date: 20100525
  Serious: No
  Sender: FDA-Public Use
  Company Number: None

PATIENT
  Age: 28 Year
  Sex: Female

DRUGS (2)
  1. TUBERSOL [Suspect]
     Dosage: IM LT DELTOID
  2. KEFLEX PRENATAL [Concomitant]

REACTIONS (2)
  - NO ADVERSE EVENT [None]
  - WRONG DRUG ADMINISTERED [None]
